FAERS Safety Report 7053517-8 (Version None)
Quarter: 2010Q4

REPORT INFORMATION
  Report Type: 
  Country: None (occurrence: None)
  Receive Date: 20101020
  Receipt Date: 20101007
  Transmission Date: 20110411
  Serious: Yes (Other)
  Sender: FDA-Public Use
  Company Number: US-PFIZER INC-2010128684

PATIENT
  Sex: Male

DRUGS (4)
  1. GEODON [Suspect]
     Dosage: 80 MG, 2X/DAY
     Dates: start: 20100501
  2. ZYPREXA [Suspect]
     Dosage: 5 MG, 1X/DAY
     Dates: start: 20100501
  3. ZYPREXA [Suspect]
     Dosage: 2.5 MG, 1X/DAY
  4. PROPRANOLOL [Suspect]
     Dosage: 10MG 1/2 TABLET TWICE DAILY
     Dates: start: 20100501, end: 20100101

REACTIONS (2)
  - ELECTROCARDIOGRAM QT PROLONGED [None]
  - SYNCOPE [None]
